FAERS Safety Report 25923564 (Version 2)
Quarter: 2025Q4

REPORT INFORMATION
  Report Type: Spontaneous
  Country: US (occurrence: US)
  Receive Date: 20251015
  Receipt Date: 20251029
  Transmission Date: 20260118
  Serious: No
  Sender: ROCHE
  Company Number: US-ROCHE-10000406534

PATIENT
  Sex: Male

DRUGS (1)
  1. OSELTAMIVIR [Suspect]
     Active Substance: OSELTAMIVIR
     Indication: Product used for unknown indication
     Route: 048

REACTIONS (6)
  - Dyspnoea [Unknown]
  - Wheezing [Unknown]
  - Dyspnoea exertional [Unknown]
  - Nasal mucosal discolouration [Unknown]
  - Nasal congestion [Unknown]
  - Oedema mucosal [Unknown]
